FAERS Safety Report 7730216-8 (Version None)
Quarter: 2011Q3

REPORT INFORMATION
  Report Type: 
  Country: None (occurrence: None)
  Receive Date: 20110906
  Receipt Date: 20110831
  Transmission Date: 20111222
  Serious: Yes (Death, Hospitalization, Other)
  Sender: FDA-Public Use
  Company Number: PHHY2010JP15721

PATIENT
  Sex: Male
  Weight: 49 kg

DRUGS (34)
  1. EXJADE [Suspect]
     Indication: IRON OVERLOAD
     Dosage: 1000 MG/DAY
     Route: 048
     Dates: start: 20090223, end: 20090305
  2. HIRUDOID [Concomitant]
     Indication: PROPHYLAXIS
     Dosage: UNK UKN, UNK
     Route: 061
     Dates: start: 20090417, end: 20090916
  3. LECICARBON [Concomitant]
     Dosage: UNK UKN, UNK
     Route: 054
     Dates: start: 20090417, end: 20090916
  4. EXJADE [Suspect]
     Dosage: 500 MG/DAY
     Route: 048
     Dates: start: 20090316, end: 20090402
  5. DESFERAL [Concomitant]
     Indication: IRON OVERLOAD
     Dosage: 500 MG, UNK
     Route: 030
     Dates: start: 20090124, end: 20090222
  6. LENDORMIN [Concomitant]
     Dosage: 0.25 MG
     Route: 048
     Dates: start: 20090223, end: 20090916
  7. LOXONIN [Concomitant]
     Dosage: 60 MG, UNK
     Route: 048
     Dates: start: 20090317, end: 20090707
  8. KETOPROFEN [Concomitant]
     Dosage: UNK UKN, UNK
     Route: 061
     Dates: start: 20090627, end: 20090916
  9. VISCORIN [Concomitant]
     Dosage: 2 ML, UNK
     Route: 042
     Dates: end: 20090916
  10. SELBEX [Concomitant]
     Dosage: 150 MG
     Route: 048
     Dates: start: 20090223, end: 20090916
  11. GENTAMICIN SULFATE [Concomitant]
     Indication: PROPHYLAXIS
     Dosage: UNK UKN, UNK
     Route: 061
     Dates: start: 20090914, end: 20090916
  12. POTASSIUM CHLORIDE [Concomitant]
     Indication: MYELODYSPLASTIC SYNDROME
     Dosage: 500 ML
     Route: 042
     Dates: start: 20090824
  13. POTASSIUM CHLORIDE [Concomitant]
     Dosage: 1000 ML, UNK
     Route: 042
     Dates: end: 20090916
  14. VITAMEDIN INTRAVENOUS [Concomitant]
     Indication: MYELODYSPLASTIC SYNDROME
     Dosage: 1 DF, UNK
     Route: 042
     Dates: start: 20090825
  15. DOPAMINE HCL [Concomitant]
     Indication: MYELODYSPLASTIC SYNDROME
     Dosage: 100 ML, UNK
     Route: 042
     Dates: start: 20090916, end: 20090916
  16. EXJADE [Suspect]
     Dosage: 500 MG/DAY
     Route: 048
     Dates: start: 20090806, end: 20090916
  17. VOLTAREN [Concomitant]
     Dosage: UNK UKN, UNK
     Route: 061
     Dates: start: 20090824, end: 20090916
  18. PREDNISOLONE [Concomitant]
     Indication: MYELODYSPLASTIC SYNDROME
     Dosage: 20 MG, UNK
     Route: 048
     Dates: start: 20090223, end: 20090916
  19. ONEALFA [Concomitant]
     Dosage: 1 UG, UNK
     Route: 048
     Dates: start: 20090223, end: 20090916
  20. ACETAMINOPHEN [Concomitant]
     Dosage: 200 MG
     Route: 048
     Dates: start: 20090318, end: 20090320
  21. VITAMEDIN INTRAVENOUS [Concomitant]
     Dosage: 1 DF, UNK
     Route: 042
     Dates: end: 20090916
  22. SODIUM CHLORIDE SOLUTION [Concomitant]
     Indication: MYELODYSPLASTIC SYNDROME
     Dosage: 500 ML
     Route: 042
     Dates: start: 20090916, end: 20090916
  23. RED BLOOD CELLS, LEUCOCYTE DEPLETED [Concomitant]
     Dosage: 2 U, EVERY TEN DAYS
     Dates: start: 20090302, end: 20090916
  24. WHITE PETROLEUM [Concomitant]
     Indication: PROPHYLAXIS
     Dosage: UNK UKN, UNK
     Route: 061
     Dates: start: 20090709, end: 20090916
  25. EXJADE [Suspect]
     Dosage: 500 MG/DAY
     Route: 048
     Dates: start: 20090306, end: 20090314
  26. EXJADE [Suspect]
     Dosage: 875 MG/DAY
     Route: 048
     Dates: start: 20090428, end: 20090805
  27. ASPIRIN [Suspect]
     Indication: PROPHYLAXIS
     Dosage: 100 MG/DAY
     Route: 048
     Dates: start: 20090223, end: 20090406
  28. PURSENNID [Concomitant]
     Indication: CONSTIPATION
     Dosage: 24 MG
     Route: 048
     Dates: start: 20090223, end: 20090822
  29. LOXONIN [Concomitant]
     Dosage: 60 MG, UNK
     Route: 048
     Dates: end: 20090707
  30. LACTEC [Concomitant]
     Indication: MYELODYSPLASTIC SYNDROME
     Dosage: 500 ML, UNK
     Route: 042
     Dates: start: 20090825, end: 20090829
  31. SOLU-CORTEF [Concomitant]
     Indication: MYELODYSPLASTIC SYNDROME
     Dosage: 100 MG, UNK
     Route: 042
     Dates: start: 20090916, end: 20090916
  32. EXJADE [Suspect]
     Dosage: 750 MG/DAY
     Route: 048
     Dates: start: 20090303, end: 20090427
  33. TAMBOCOR [Concomitant]
     Dosage: 100 MG, UNK
     Route: 048
     Dates: start: 20090223, end: 20090916
  34. VISCORIN [Concomitant]
     Indication: MYELODYSPLASTIC SYNDROME
     Dosage: 2 ML, UNK
     Route: 042
     Dates: start: 20090825, end: 20090916

REACTIONS (15)
  - INFECTION [None]
  - PNEUMONIA [None]
  - WHITE BLOOD CELL COUNT INCREASED [None]
  - PENILE ULCERATION [None]
  - PYREXIA [None]
  - DENTAL CARIES [None]
  - URINARY RETENTION [None]
  - BLOOD CREATININE INCREASED [None]
  - BLOOD UREA INCREASED [None]
  - RESPIRATORY FAILURE [None]
  - DUODENAL ULCER [None]
  - ESCHERICHIA URINARY TRACT INFECTION [None]
  - BRONCHITIS [None]
  - SPUTUM RETENTION [None]
  - URINARY TRACT INFECTION [None]
